FAERS Safety Report 10871818 (Version 4)
Quarter: 2015Q2

REPORT INFORMATION
  Report Type: Report from Study
  Country: None (occurrence: DE)
  Receive Date: 20150226
  Receipt Date: 20150629
  Transmission Date: 20150821
  Serious: Yes (Hospitalization, Disabling, Other)
  Sender: FDA-Public Use
  Company Number: DE-INCYTE CORPORATION-2015IN000723

PATIENT
  Sex: Male
  Weight: 96 kg

DRUGS (1)
  1. JAKAFI [Suspect]
     Active Substance: RUXOLITINIB
     Indication: POLYCYTHAEMIA VERA
     Dosage: 10 MG, TWICE DAILY
     Route: 048
     Dates: start: 20131219

REACTIONS (2)
  - Polyneuropathy [Recovering/Resolving]
  - Product use issue [Unknown]
